FAERS Safety Report 7776536-2 (Version None)
Quarter: 2011Q3

REPORT INFORMATION
  Report Type: 
  Country: None (occurrence: None)
  Receive Date: 20110922
  Receipt Date: 20110922
  Transmission Date: 20111222
  Serious: No
  Sender: FDA-Public Use
  Company Number: None

PATIENT
  Age: 52 Year
  Sex: Male
  Weight: 86 kg

DRUGS (1)
  1. CRESTOR [Suspect]
     Indication: BLOOD CHOLESTEROL INCREASED
     Dosage: 10MG 1X DAILY ORAL
     Route: 048
     Dates: start: 20100311, end: 20110303

REACTIONS (4)
  - ABASIA [None]
  - DYSSTASIA [None]
  - BLOOD TEST ABNORMAL [None]
  - MYALGIA [None]
